FAERS Safety Report 5094069-1 (Version None)
Quarter: 2006Q3

REPORT INFORMATION
  Report Type: 
  Country: None (occurrence: None)
  Receive Date: 20060831
  Receipt Date: 20060605
  Transmission Date: 20061208
  Serious: Yes (Hospitalization)
  Sender: FDA-Public Use
  Company Number: US-ROCHE-450829

PATIENT
  Age: 60 Year
  Sex: Male
  Weight: 83 kg

DRUGS (10)
  1. PEGASYS [Suspect]
     Route: 058
     Dates: start: 20060511, end: 20060622
  2. RIBAVIRIN [Suspect]
     Route: 048
     Dates: start: 20060511, end: 20060622
  3. ZOLOFT [Concomitant]
     Route: 048
  4. PREVACID [Concomitant]
     Route: 048
  5. SENNA [Concomitant]
  6. UNSPECIFIED DRUG [Concomitant]
     Dosage: REPORTED AS DOCERATE.
  7. BLOOD PRESSURE MEDICATION NOS [Concomitant]
     Indication: HYPERTENSION
     Dosage: DOSAGE REPORTED THREE PILLS.
     Route: 048
  8. BLOOD PRESSURE MEDICATION NOS [Concomitant]
     Dosage: DOSAGE REPORTED AS ONE PILL PRN.
     Dates: start: 20060615
  9. DIURETIC NOS [Concomitant]
     Dosage: ON AN UNKNOWN DATE, THE DOSE WAS CUT IN HALF.
     Route: 048
  10. MORPHINE [Concomitant]

REACTIONS (15)
  - AMNESIA [None]
  - ASTHENIA [None]
  - BLOOD PRESSURE FLUCTUATION [None]
  - COLITIS [None]
  - DEPRESSION [None]
  - DYSGEUSIA [None]
  - ERYTHEMA [None]
  - FALL [None]
  - INSOMNIA [None]
  - MENTAL STATUS CHANGES [None]
  - PANCREATITIS [None]
  - PHOTOSENSITIVITY REACTION [None]
  - RENAL FAILURE CHRONIC [None]
  - VISUAL DISTURBANCE [None]
  - WEIGHT DECREASED [None]
